FAERS Safety Report 14450794 (Version 1)
Quarter: 2018Q1

REPORT INFORMATION
  Report Type: Spontaneous
  Country: ES (occurrence: ES)
  Receive Date: 20180129
  Receipt Date: 20180129
  Transmission Date: 20180509
  Serious: Yes (Death, Hospitalization)
  Sender: FDA-Public Use
  Company Number: ES-009507513-1801ESP012993

PATIENT
  Age: 92 Year
  Sex: Female

DRUGS (10)
  1. SIMVASTATIN. [Suspect]
     Active Substance: SIMVASTATIN
     Indication: SUICIDE ATTEMPT
     Dosage: IN TOTAL: 140 MG, ONCE
     Route: 048
     Dates: start: 20170611, end: 20170611
  2. ALPRAZOLAM. [Suspect]
     Active Substance: ALPRAZOLAM
     Indication: SUICIDE ATTEMPT
     Dosage: IN TOTAL; 7 MG, ONCE
     Route: 048
     Dates: start: 20170611, end: 20170611
  3. OLANZAPINE. [Suspect]
     Active Substance: OLANZAPINE
     Indication: SUICIDE ATTEMPT
     Dosage: 17.5 MG
     Route: 048
     Dates: start: 20170611, end: 20170611
  4. METFORMIN [Suspect]
     Active Substance: METFORMIN HYDROCHLORIDE
     Indication: SUICIDE ATTEMPT
     Dosage: 18 G
     Route: 048
     Dates: start: 20170611, end: 20170611
  5. CITALOPRAM [Suspect]
     Active Substance: CITALOPRAM HYDROBROMIDE
     Indication: SUICIDE ATTEMPT
     Dosage: IN TOTAL; 140 MG, ONCE
     Route: 048
     Dates: start: 20170611, end: 20170611
  6. ZOLPIDEM [Suspect]
     Active Substance: ZOLPIDEM\ZOLPIDEM TARTRATE
     Indication: SUICIDE ATTEMPT
     Dosage: IN TOTAL; 70 MG, ONCE
     Route: 048
     Dates: start: 20170611, end: 20170611
  7. RAMIPRIL. [Suspect]
     Active Substance: RAMIPRIL
     Indication: SUICIDE ATTEMPT
     Dosage: IN TOTAL; 17.5 MG ONCE
     Route: 048
     Dates: start: 20170611, end: 20170611
  8. OMEPRAZOLE. [Suspect]
     Active Substance: OMEPRAZOLE
     Indication: SUICIDE ATTEMPT
     Dosage: IN TOTAL; 140 MG, ONCE
     Route: 048
     Dates: start: 20170611, end: 20170611
  9. PREGABALIN. [Suspect]
     Active Substance: PREGABALIN
     Indication: SUICIDE ATTEMPT
     Dosage: IN TOTAL: 1050 MG, ONCE
     Route: 048
     Dates: start: 20170611, end: 20170611
  10. ACETAMINOPHEN. [Suspect]
     Active Substance: ACETAMINOPHEN
     Indication: SUICIDE ATTEMPT
     Dosage: IN TOTAL; 21 G, ONCE
     Route: 048
     Dates: start: 20170611, end: 20170611

REACTIONS (1)
  - Intentional overdose [Fatal]

NARRATIVE: CASE EVENT DATE: 20170611
